FAERS Safety Report 4411973-5 (Version None)
Quarter: 2004Q3

REPORT INFORMATION
  Report Type: 
  Country: None (occurrence: None)
  Receive Date: 20040729
  Receipt Date: 20040729
  Transmission Date: 20050211
  Serious: Yes (Hospitalization)
  Sender: FDA-Public Use
  Company Number: None

PATIENT
  Age: 15 Year
  Sex: Female
  Weight: 54.5 kg

DRUGS (2)
  1. WELLBUTRIN SR [Suspect]
     Indication: DEPRESSION
     Dosage: 100 MG PO BID
     Route: 048
     Dates: start: 20030701, end: 20040701
  2. WELLBUTRIN SR [Suspect]
     Indication: SMOKING CESSATION THERAPY
     Dosage: 100 MG PO BID
     Route: 048
     Dates: start: 20030701, end: 20040701

REACTIONS (3)
  - CONVULSION [None]
  - INTENTIONAL OVERDOSE [None]
  - SUICIDE ATTEMPT [None]
